FAERS Safety Report 13689987 (Version 2)
Quarter: 2017Q3

REPORT INFORMATION
  Report Type: Report from Study
  Country: IN (occurrence: IN)
  Receive Date: 20170626
  Receipt Date: 20170704
  Transmission Date: 20171127
  Serious: Yes (Death, Congenital Anomaly, Other)
  Sender: FDA-Public Use
  Company Number: PHHY2017IN093561

PATIENT
  Sex: Female

DRUGS (1)
  1. GLIVEC [Suspect]
     Active Substance: IMATINIB MESYLATE
     Indication: CHRONIC MYELOID LEUKAEMIA
     Dosage: 600 MG, UNK
     Route: 064

REACTIONS (3)
  - Premature baby [Fatal]
  - Foetal exposure during pregnancy [Unknown]
  - Neonatal respiratory distress syndrome [Fatal]
